FAERS Safety Report 9798379 (Version 2)
Quarter: 2014Q1

REPORT INFORMATION
  Report Type: Spontaneous
  Country: US (occurrence: US)
  Receive Date: 20140106
  Receipt Date: 20140106
  Transmission Date: 20141002
  Serious: No
  Sender: FDA-Public Use
  Company Number: US-MYLANLABS-2013S1026800

PATIENT
  Age: 68 Year
  Sex: Female
  Weight: 76.2 kg

DRUGS (16)
  1. METOPROLOL SUCCINATE EXTENDED-RELEASE TABLETS USP [Suspect]
     Indication: BLOOD PRESSURE INCREASED
     Route: 048
     Dates: start: 2013
  2. METOPROLOL SUCCINATE EXTENDED-RELEASE TABLETS USP [Suspect]
     Indication: BLOOD PRESSURE INCREASED
     Dosage: ALSO TAKES 50MG IN THE EVENING
     Route: 048
     Dates: start: 2013
  3. BLOOD GLUCOSE LOWERING DRUGS, EXCL. INSULINS [Suspect]
     Indication: BLOOD GLUCOSE ABNORMAL
     Dates: end: 2013
  4. BLOOD GLUCOSE LOWERING DRUGS, EXCL. INSULINS [Suspect]
     Indication: PROPHYLAXIS
     Dates: end: 2013
  5. BLOOD GLUCOSE LOWERING DRUGS, EXCL. INSULINS [Suspect]
     Indication: WEIGHT CONTROL
     Dates: end: 2013
  6. AMLODIPINE [Concomitant]
     Route: 048
  7. HYDROCHLOROTHIAZIDE W/LOSARTAN [Concomitant]
     Dosage: DOSE IS 100MG LOSARTAN AND 25MG HCTZ
     Route: 048
  8. LIPITOR [Concomitant]
     Indication: BLOOD CHOLESTEROL INCREASED
     Route: 048
  9. BUSPIRONE [Concomitant]
     Indication: ANXIETY
     Route: 048
  10. VENLAFAXINE [Concomitant]
     Indication: DEPRESSION
     Dosage: EXTENDED-RELEASE
     Route: 048
  11. POTASSIUM [Concomitant]
     Route: 048
  12. MONODOX /00055701/ [Concomitant]
     Indication: ROSACEA
     Route: 048
  13. MULTIVITAMIN [Concomitant]
  14. FINACEA [Concomitant]
     Indication: ROSACEA
     Dosage: 15%
     Route: 061
  15. COQ 10 [Concomitant]
     Route: 048
  16. GINKGO BILOBA [Concomitant]

REACTIONS (2)
  - Palpitations [Recovered/Resolved]
  - Palpitations [Recovered/Resolved]
